FAERS Safety Report 12843775 (Version 1)
Quarter: 2016Q4

REPORT INFORMATION
  Report Type: Spontaneous
  Country: US (occurrence: US)
  Receive Date: 20161013
  Receipt Date: 20161013
  Transmission Date: 20170207
  Serious: No
  Sender: FDA-Public Use
  Company Number: None

PATIENT
  Sex: Female
  Weight: 123.83 kg

DRUGS (2)
  1. NORGESTIMATE, ETHINYL ESTRADOL 0.18/0.215/0.25MG-25MCG [Suspect]
     Active Substance: ETHINYL ESTRADIOL\NORGESTIMATE
     Indication: POLYCYSTIC OVARIES
     Dosage: PER PT TRIED IN 2015 AND ONCE IN 2016
     Route: 048
     Dates: start: 2015, end: 2016
  2. NORGESTIMATE, ETHINYL ESTRADOL 0.18/0.215/0.25MG-25MCG [Suspect]
     Active Substance: ETHINYL ESTRADIOL\NORGESTIMATE
     Indication: MENORRHAGIA
     Dosage: PER PT TRIED IN 2015 AND ONCE IN 2016
     Route: 048
     Dates: start: 2015, end: 2016

REACTIONS (4)
  - Product substitution issue [None]
  - Anaemia [None]
  - Haemorrhage [None]
  - Polycystic ovaries [None]

NARRATIVE: CASE EVENT DATE: 2015
